FAERS Safety Report 9293711 (Version 2)
Quarter: 2013Q2

REPORT INFORMATION
  Report Type: Spontaneous
  Country: US (occurrence: US)
  Receive Date: 20130516
  Receipt Date: 20130613
  Transmission Date: 20140414
  Serious: No
  Sender: FDA-Public Use
  Company Number: US-B.I. PHARMACEUTICALS,INC./RIDGEFIELD-2013-BI-13614BP

PATIENT
  Age: 72 Year
  Sex: Male
  Weight: 112.49 kg

DRUGS (1)
  1. PRADAXA [Suspect]
     Indication: ATRIAL FIBRILLATION
     Dosage: 150 MG
     Route: 048
     Dates: start: 20130423, end: 20130513

REACTIONS (2)
  - Fatigue [Recovered/Resolved]
  - Dizziness [Recovered/Resolved]
